FAERS Safety Report 18860761 (Version 3)
Quarter: 2022Q3

REPORT INFORMATION
  Report Type: Report from Study
  Country: EG (occurrence: EG)
  Receive Date: 20210208
  Receipt Date: 20220908
  Transmission Date: 20221027
  Serious: Yes (Other)
  Sender: FDA-Public Use
  Company Number: NVSC2021EG025910

PATIENT
  Age: 8 Year
  Sex: Male
  Weight: 23 kg

DRUGS (6)
  1. OMNITROPE [Suspect]
     Active Substance: SOMATROPIN
     Indication: Growth hormone deficiency
     Dosage: 0.7 MG, QD
     Route: 058
     Dates: start: 20201210
  2. OSTEOCARE [Concomitant]
     Active Substance: CALCIUM\CHOLECALCIFEROL\MAGNESIUM\ZINC
     Indication: Product used for unknown indication
     Dosage: UNK, QD 5CM/DAY (STARTED FROM 3 WEEKS)
     Route: 065
  3. VITAMINS [Concomitant]
     Active Substance: VITAMINS
     Indication: Malnutrition
     Dosage: 1 DOSAGE FORM, QD (STARTED ONE YEAR AGO OR 9 MONTHS)
     Route: 048
  4. ZINC [Concomitant]
     Active Substance: ZINC
     Indication: Malnutrition
     Dosage: 5 CENTIMETRE, QD (STARTED 5 YEARS AGO)
     Route: 048
  5. VIDROP [Concomitant]
     Indication: Malnutrition
     Dosage: 1 DRP, QD (STARTED 5 YEARS AGO)
     Route: 048
  6. PHENADONE [Concomitant]
     Indication: Asthma
     Dosage: 5 CENTIMETRE, QD (STARTED LONG TIME AGO WHEN THE ASTHMA STARTED)
     Route: 048

REACTIONS (6)
  - Vitamin D deficiency [Not Recovered/Not Resolved]
  - Hypocalcaemia [Not Recovered/Not Resolved]
  - Drug dose omission by device [Not Recovered/Not Resolved]
  - Arthralgia [Recovered/Resolved]
  - Product availability issue [Not Recovered/Not Resolved]
  - Device malfunction [Unknown]

NARRATIVE: CASE EVENT DATE: 20201201
